FAERS Safety Report 5519488-8 (Version None)
Quarter: 2007Q4

REPORT INFORMATION
  Report Type: 
  Country: None (occurrence: None)
  Receive Date: 20071114
  Receipt Date: 20071101
  Transmission Date: 20080405
  Serious: Yes (Death, Hospitalization)
  Sender: FDA-Public Use
  Company Number: 100#08#2007-04603

PATIENT
  Age: 53 Year
  Sex: Male

DRUGS (9)
  1. PARACETAMOL (PARACETAMOL) (PARACETAMOL) [Suspect]
     Indication: ANALGESIA
  2. OMEPRAZOLE [Suspect]
     Indication: DRUG USE FOR UNKNOWN INDICATION
  3. METOCLOPRAMIDE [Suspect]
     Indication: DRUG USE FOR UNKNOWN INDICATION
  4. METRONIDAZOLE [Suspect]
     Indication: SEPSIS
  5. VANCOMYCIN HYDROCHLORIDE [Suspect]
     Indication: SEPSIS
  6. AUGMENTIN '125' [Suspect]
     Indication: SEPSIS
  7. GENTAMYCIN SULFATE [Suspect]
     Indication: SEPSIS
  8. LEVOFLOXACIN [Suspect]
     Indication: SEPSIS
  9. DICLOFENAC (DICLOFENAC) (DICLOFENAC) [Concomitant]

REACTIONS (5)
  - DISORIENTATION [None]
  - FISTULA [None]
  - GENERAL PHYSICAL HEALTH DETERIORATION [None]
  - METABOLIC ACIDOSIS [None]
  - MYOCARDIAL INFARCTION [None]
